FAERS Safety Report 23936702 (Version 3)
Quarter: 2024Q3

REPORT INFORMATION
  Report Type: Spontaneous
  Country: US (occurrence: US)
  Receive Date: 20240604
  Receipt Date: 20240711
  Transmission Date: 20241016
  Serious: Yes (Other)
  Sender: AUROBINDO
  Company Number: US-AUROBINDO-AUR-APL-2024-026124

PATIENT
  Age: 52 Year
  Sex: Male
  Weight: 73.028 kg

DRUGS (14)
  1. DULOXETINE [Suspect]
     Active Substance: DULOXETINE
     Indication: Antidepressant therapy
     Dosage: UNK (SWALLOW WHOLE WITH A DRINK OF WATER OR JUICE AT THE SAME TIME EACH DAY)
     Route: 065
     Dates: start: 20210720
  2. DULOXETINE [Suspect]
     Active Substance: DULOXETINE
     Indication: Neuralgia
     Dosage: UNK (SWALLOW WHOLE WITH A DRINK  OF WATER OR JUICE AT THE SAME  TIME EACH DAY.)
     Route: 065
     Dates: start: 20211005
  3. TAMSULOSIN HYDROCHLORIDE [Suspect]
     Active Substance: TAMSULOSIN HYDROCHLORIDE
     Indication: Urinary retention
     Dosage: 1 DOSAGE FORM (TAKE 1 CAPSULE BY MOUTH 30 MINUTES AFTER THE SAME MEAL EACH DAY)
     Route: 065
  4. TAMSULOSIN HYDROCHLORIDE [Suspect]
     Active Substance: TAMSULOSIN HYDROCHLORIDE
     Dosage: 1 DOSAGE FORM (TAKE 1 CAPSULE BY MOUTH 30 MINUTES AFTER THE SAME MEAL EACH DAY)
     Route: 065
  5. TAMSULOSIN HYDROCHLORIDE [Suspect]
     Active Substance: TAMSULOSIN HYDROCHLORIDE
     Dosage: 1 DOSAGE FORM (TAKE 1 CAPSULE BY MOUTH 30 MINUTES AFTER THE SAME MEAL EACH DAY)
     Route: 065
  6. TAMSULOSIN HYDROCHLORIDE [Suspect]
     Active Substance: TAMSULOSIN HYDROCHLORIDE
     Dosage: 1 DOSAGE FORM (TAKE 1 CAPSULE BY MOUTH 30 MINUTES AFTER THE SAME MEAL EACH DAY)
     Route: 065
  7. TAMSULOSIN HYDROCHLORIDE [Suspect]
     Active Substance: TAMSULOSIN HYDROCHLORIDE
     Dosage: 1 DOSAGE FORM (TAKE 1 CAPSULE BY MOUTH 30 MINUTES AFTER THE SAME MEAL EACH DAY)
     Route: 065
  8. TAMSULOSIN HYDROCHLORIDE [Suspect]
     Active Substance: TAMSULOSIN HYDROCHLORIDE
     Dosage: 1 DOSAGE FORM (TAKE 1 CAPSULE BY MOUTH 30 MINUTES AFTER THE SAME MEAL EACH DAY)
     Route: 065
  9. TAMSULOSIN HYDROCHLORIDE [Suspect]
     Active Substance: TAMSULOSIN HYDROCHLORIDE
     Dosage: 1 DOSAGE FORM (TAKE 1 CAPSULE BY MOUTH 30 MINUTES AFTER THE SAME MEAL EACH DAY)
     Route: 065
  10. TAMSULOSIN HYDROCHLORIDE [Suspect]
     Active Substance: TAMSULOSIN HYDROCHLORIDE
     Dosage: 1 DOSAGE FORM (TAKE 1 CAPSULE BY MOUTH 30 MINUTES AFTER THE SAME MEAL EACH DAY)
     Route: 065
  11. TAMSULOSIN HYDROCHLORIDE [Suspect]
     Active Substance: TAMSULOSIN HYDROCHLORIDE
     Dosage: 1 DOSAGE FORM (TAKE 1 CAPSULE BY MOUTH 30  MINUTES AFTER THE SAME MEAL  EACH DAY)
     Route: 065
     Dates: start: 20211005
  12. DULOXETINE [Concomitant]
     Active Substance: DULOXETINE
     Indication: Fibromyalgia
     Dosage: UNK
     Route: 065
     Dates: start: 2019
  13. DULOXETINE [Concomitant]
     Active Substance: DULOXETINE
     Indication: Diabetic neuropathy
  14. DULOXETINE [Concomitant]
     Active Substance: DULOXETINE
     Indication: Musculoskeletal pain

REACTIONS (11)
  - Acute kidney injury [Not Recovered/Not Resolved]
  - Benign prostatic hyperplasia [Not Recovered/Not Resolved]
  - Constipation [Not Recovered/Not Resolved]
  - Renal disorder [Unknown]
  - Gastrointestinal disorder [Not Recovered/Not Resolved]
  - Nocturia [Not Recovered/Not Resolved]
  - Large intestine polyp [Not Recovered/Not Resolved]
  - Vision blurred [Not Recovered/Not Resolved]
  - Petechiae [Not Recovered/Not Resolved]
  - Urinary tract disorder [Not Recovered/Not Resolved]
  - Product odour abnormal [Unknown]

NARRATIVE: CASE EVENT DATE: 20211005
